FAERS Safety Report 4824064-6 (Version None)
Quarter: 2005Q4

REPORT INFORMATION
  Report Type: 
  Country: None (occurrence: None)
  Receive Date: 20051108
  Receipt Date: 20051026
  Transmission Date: 20060501
  Serious: Yes (Death)
  Sender: FDA-Public Use
  Company Number: USA0507103525

PATIENT
  Age: 1 Day
  Sex: Male
  Weight: 737 kg

DRUGS (11)
  1. XIGRIS [Suspect]
     Dates: start: 20050718, end: 20050719
  2. PHENYLEPHRINE [Concomitant]
  3. ATIVAN [Concomitant]
  4. NICOTINE [Concomitant]
  5. VANCOMYCIN [Concomitant]
  6. GENTAMICIN [Concomitant]
  7. METHADONE HCL [Concomitant]
  8. FENTANYL [Concomitant]
  9. ATROVENT [Concomitant]
  10. HEPARIN [Concomitant]
  11. PROTONIX [Concomitant]

REACTIONS (7)
  - ACTIVATED PARTIAL THROMBOPLASTIN TIME PROLONGED [None]
  - BLOOD PRESSURE ABNORMAL [None]
  - DRUG EXPOSURE DURING PREGNANCY [None]
  - LIFE SUPPORT [None]
  - PREMATURE SEPARATION OF PLACENTA [None]
  - PROTHROMBIN TIME PROLONGED [None]
  - STILLBIRTH [None]
